FAERS Safety Report 8282487-X (Version None)
Quarter: 2012Q2

REPORT INFORMATION
  Report Type: 
  Country: None (occurrence: None)
  Receive Date: 20120413
  Receipt Date: 20120409
  Transmission Date: 20120825
  Serious: Yes (Other)
  Sender: FDA-Public Use
  Company Number: BR-ABBOTT-12P-020-0923678-00

PATIENT
  Sex: Male
  Weight: 79 kg

DRUGS (5)
  1. UNSPECIFIED CORTICOID [Concomitant]
     Dosage: 2 TABLETS WHEN CONDITION IS WORSE
     Route: 048
  2. CRESTOR [Concomitant]
     Indication: BLOOD CHOLESTEROL INCREASED
     Dosage: DAILY AFTER DINNER
     Route: 048
  3. UNSPECIFIED CORTICOID [Concomitant]
     Indication: ARTHRALGIA
     Dosage: AFTER BREAKFAST
     Route: 048
  4. HUMIRA [Suspect]
     Indication: RHEUMATOID ARTHRITIS
     Route: 048
     Dates: start: 20101009
  5. HIXIZINE [Concomitant]
     Indication: HYPERSENSITIVITY
     Dosage: DAILY AT NIGHT
     Route: 048

REACTIONS (6)
  - DIABETES MELLITUS [None]
  - INTESTINAL POLYP [None]
  - FAECES DISCOLOURED [None]
  - FEELING ABNORMAL [None]
  - DRY SKIN [None]
  - DIARRHOEA [None]
